FAERS Safety Report 13507853 (Version 1)
Quarter: 2017Q2

REPORT INFORMATION
  Report Type: Spontaneous
  Country: US (occurrence: US)
  Receive Date: 20170503
  Receipt Date: 20170503
  Transmission Date: 20170830
  Serious: Yes (Hospitalization)
  Sender: FDA-Public Use
  Company Number: None

PATIENT
  Age: 81 Year
  Sex: Male

DRUGS (31)
  1. TRAMADOL. [Concomitant]
     Active Substance: TRAMADOL
  2. PROTONIX [Concomitant]
     Active Substance: PANTOPRAZOLE SODIUM
  3. ZOLPIDEM [Concomitant]
     Active Substance: ZOLPIDEM\ZOLPIDEM TARTRATE
  4. MULTI-VITAMIN [Concomitant]
     Active Substance: .ALPHA.-TOCOPHEROL ACETATE, DL-\ASCORBIC ACID\CYANOCOBALAMIN\FLUORIDE ION\FOLIC ACID\NIACIN\PYRIDOXINE\RIBOFLAVIN\THIAMINE\VITAMIN A\VITAMIN D
  5. SIMVASTATIN. [Concomitant]
     Active Substance: SIMVASTATIN
  6. ZOFRAN [Concomitant]
     Active Substance: ONDANSETRON HYDROCHLORIDE
  7. CITALOPRAM [Concomitant]
     Active Substance: CITALOPRAM HYDROBROMIDE
  8. ZETIA [Concomitant]
     Active Substance: EZETIMIBE
  9. TAMSULOSIN [Concomitant]
     Active Substance: TAMSULOSIN
  10. METOPROLOL TARTRATE. [Concomitant]
     Active Substance: METOPROLOL TARTRATE
  11. PRESERVISION [Concomitant]
     Active Substance: MINERALS\VITAMINS
  12. ESZOPICLONE. [Concomitant]
     Active Substance: ESZOPICLONE
  13. TESTOST CYP [Concomitant]
     Active Substance: TESTOSTERONE CYPIONATE
  14. VYTORIN [Concomitant]
     Active Substance: EZETIMIBE\SIMVASTATIN
  15. LEVEMIR [Concomitant]
     Active Substance: INSULIN DETEMIR
  16. ASPIRIN. [Concomitant]
     Active Substance: ASPIRIN
  17. RANEXA [Concomitant]
     Active Substance: RANOLAZINE
  18. NORVASC [Concomitant]
     Active Substance: AMLODIPINE BESYLATE
  19. INSULIN [Concomitant]
     Active Substance: INSULIN NOS
  20. MEGESTROL [Concomitant]
     Active Substance: MEGESTROL
  21. PANTOPRAZOLE [Concomitant]
     Active Substance: PANTOPRAZOLE
  22. ATORVASTATIN [Concomitant]
     Active Substance: ATORVASTATIN
  23. VOTRIENT [Suspect]
     Active Substance: PAZOPANIB HYDROCHLORIDE
     Indication: RENAL CANCER
     Dosage: 4 TABLETS DAILY ORAL
     Route: 048
     Dates: start: 20170303
  24. FLOMAX [Concomitant]
     Active Substance: TAMSULOSIN HYDROCHLORIDE
  25. LISINOPRIL. [Concomitant]
     Active Substance: LISINOPRIL
  26. NOTROSTAT [Concomitant]
  27. FUROSEMIDE. [Concomitant]
     Active Substance: FUROSEMIDE
  28. AMLODIPINE [Concomitant]
     Active Substance: AMLODIPINE BESYLATE
  29. CLOPIDOGREL [Concomitant]
     Active Substance: CLOPIDOGREL BISULFATE
  30. AMBIEN [Concomitant]
     Active Substance: ZOLPIDEM TARTRATE
  31. ZANTAC [Concomitant]
     Active Substance: RANITIDINE HYDROCHLORIDE

REACTIONS (1)
  - Hospitalisation [None]
